FAERS Safety Report 8848377 (Version 1)
Quarter: 2012Q4

REPORT INFORMATION
  Report Type: 
  Country: CH (occurrence: CH)
  Receive Date: 20121018
  Receipt Date: 20121018
  Transmission Date: 20130627
  Serious: Yes (Hospitalization, Other)
  Sender: FDA-Public Use
  Company Number: PHHY2012CH077120

PATIENT
  Sex: Male
  Weight: 107.6 kg

DRUGS (5)
  1. EXFORGE HCT [Suspect]
     Indication: HYPERTENSION
     Route: 048
  2. CARVEDILOL [Concomitant]
     Dosage: 0.5 DF, daily
  3. ZYPREXA [Concomitant]
     Dosage: 2.5 DF, daily
  4. PANTOZOL [Concomitant]
     Dosage: 1 DF, daily
  5. DAFALGAN [Concomitant]

REACTIONS (22)
  - Suicide attempt [Unknown]
  - Contusion [Unknown]
  - Tenderness [Unknown]
  - Loss of consciousness [Unknown]
  - Musculoskeletal chest pain [Unknown]
  - Migraine [Unknown]
  - Personality disorder [Unknown]
  - Mental impairment [Unknown]
  - Syncope [Unknown]
  - Nausea [Unknown]
  - Dizziness [Unknown]
  - Hyponatraemia [Unknown]
  - Bradycardia [Unknown]
  - Hypertension [Unknown]
  - Vertigo [Unknown]
  - Wrist fracture [Unknown]
  - Rib fracture [Unknown]
  - Thirst [Unknown]
  - Headache [Unknown]
  - Chest pain [Unknown]
  - Blood glucose increased [Unknown]
  - Diarrhoea [Unknown]
